FAERS Safety Report 15432496 (Version 3)
Quarter: 2019Q2

REPORT INFORMATION
  Report Type: Report from Study
  Country: US (occurrence: US)
  Receive Date: 20180927
  Receipt Date: 20190412
  Transmission Date: 20190711
  Serious: Yes (Hospitalization, Other)
  Sender: FDA-Public Use
  Company Number: US-ROCHE-2185859

PATIENT
  Age: 58 Year
  Sex: Female
  Weight: 83.99 kg

DRUGS (4)
  1. PERJETA [Suspect]
     Active Substance: PERTUZUMAB
     Indication: BREAST CANCER METASTATIC
     Dosage: ONGOING: UNKNOWN
     Route: 042
     Dates: start: 201408
  2. PERJETA [Suspect]
     Active Substance: PERTUZUMAB
     Route: 042
     Dates: start: 201407
  3. HERCEPTIN [Suspect]
     Active Substance: TRASTUZUMAB
     Indication: METASTASES TO BONE
     Route: 042
     Dates: start: 201407
  4. HERCEPTIN [Suspect]
     Active Substance: TRASTUZUMAB
     Indication: BREAST CANCER STAGE III
     Dosage: ONGOING: NO
     Route: 042
     Dates: start: 2009

REACTIONS (10)
  - Ill-defined disorder [Unknown]
  - Dysphemia [Unknown]
  - Gait disturbance [Unknown]
  - Transient ischaemic attack [Unknown]
  - Memory impairment [Recovering/Resolving]
  - Type 2 diabetes mellitus [Not Recovered/Not Resolved]
  - Neuropathy peripheral [Recovering/Resolving]
  - Cerebral atrophy [Unknown]
  - Tremor [Unknown]
  - Asthenia [Unknown]

NARRATIVE: CASE EVENT DATE: 2015
